FAERS Safety Report 6500677-0 (Version None)
Quarter: 2009Q4

REPORT INFORMATION
  Report Type: 
  Country: None (occurrence: None)
  Receive Date: 20091216
  Receipt Date: 20090107
  Transmission Date: 20100525
  Serious: No
  Sender: FDA-Public Use
  Company Number: A0762667A

PATIENT
  Age: 41 Year
  Sex: Male

DRUGS (1)
  1. COMMIT [Suspect]
     Dates: start: 20081231

REACTIONS (1)
  - GASTROOESOPHAGEAL REFLUX DISEASE [None]
